FAERS Safety Report 5285538-X (Version None)
Quarter: 2007Q1

REPORT INFORMATION
  Report Type: 
  Country: None (occurrence: None)
  Receive Date: 20061227
  Receipt Date: 20061004
  Transmission Date: 20070707
  Serious: Yes (Hospitalization)
  Sender: FDA-Public Use
  Company Number: A03200606114

PATIENT
  Sex: Female

DRUGS (2)
  1. AMBIEN CR [Suspect]
     Dosage: ORAL
     Route: 048
  2. ATARAX [Suspect]
     Dosage: 100 MG QD - ORAL
     Route: 048

REACTIONS (4)
  - ABNORMAL BEHAVIOUR [None]
  - AGGRESSION [None]
  - AMNESIA [None]
  - SUICIDAL IDEATION [None]
